FAERS Safety Report 18040814 (Version 2)
Quarter: 2020Q4

REPORT INFORMATION
  Report Type: Spontaneous
  Country: US (occurrence: US)
  Receive Date: 20200717
  Receipt Date: 20201015
  Transmission Date: 20210113
  Serious: No
  Sender: FDA-Public Use
  Company Number: NVSC2020US200183

PATIENT
  Age: 66 Year
  Sex: Female

DRUGS (1)
  1. TAFINLAR COMBO [Suspect]
     Active Substance: DABRAFENIB\TRAMETINIB
     Indication: NEOPLASM MALIGNANT
     Dosage: 75 MG, Q48H
     Route: 048
     Dates: start: 20200521, end: 20200521

REACTIONS (2)
  - Headache [Recovered/Resolved]
  - Vomiting [Recovered/Resolved]

NARRATIVE: CASE EVENT DATE: 20200521
